FAERS Safety Report 4852719-6 (Version None)
Quarter: 2005Q4

REPORT INFORMATION
  Report Type: 
  Country: None (occurrence: None)
  Receive Date: 20051213
  Receipt Date: 20050921
  Transmission Date: 20060501
  Serious: Yes (Hospitalization, Disabling, Other)
  Sender: FDA-Public Use
  Company Number: US-MERCK-0509USA03296

PATIENT
  Age: 76 Year
  Sex: Female
  Weight: 51 kg

DRUGS (1)
  1. VIOXX [Suspect]
     Indication: ARTHRALGIA
     Route: 048
     Dates: start: 20010101

REACTIONS (27)
  - ADVERSE EVENT [None]
  - ARTHROPATHY [None]
  - ASTHENIA [None]
  - ATRIAL FIBRILLATION [None]
  - BREAST CANCER RECURRENT [None]
  - BRONCHITIS [None]
  - CARDIAC MURMUR [None]
  - CEREBELLAR INFARCTION [None]
  - DIARRHOEA [None]
  - DIVERTICULUM [None]
  - DYSPHAGIA [None]
  - EAR ABRASION [None]
  - EMBOLISM [None]
  - ENDOMETRIAL HYPERPLASIA [None]
  - FACET JOINT SYNDROME [None]
  - FATIGUE [None]
  - GASTROINTESTINAL HAEMORRHAGE [None]
  - HIATUS HERNIA [None]
  - HYPERLIPIDAEMIA [None]
  - HYPERTENSION [None]
  - NORMOCHROMIC NORMOCYTIC ANAEMIA [None]
  - PNEUMONIA ASPIRATION [None]
  - POST LAMINECTOMY SYNDROME [None]
  - POSTMENOPAUSAL HAEMORRHAGE [None]
  - SACROILIITIS [None]
  - SPINAL OSTEOARTHRITIS [None]
  - WEIGHT DECREASED [None]
